FAERS Safety Report 22129259 (Version 1)
Quarter: 2023Q1

REPORT INFORMATION
  Report Type: Spontaneous
  Country: US (occurrence: None)
  Receive Date: 20230323
  Receipt Date: 20230323
  Transmission Date: 20230417
  Serious: No
  Sender: FDA-Public Use
  Company Number: 2023A049443

PATIENT
  Age: 24941 Day
  Sex: Male
  Weight: 106.1 kg

DRUGS (1)
  1. SYMBICORT [Suspect]
     Active Substance: BUDESONIDE\FORMOTEROL FUMARATE DIHYDRATE
     Indication: Glossodynia
     Dosage: 2 PUFFS 2 TIMES A DAY
     Route: 055
     Dates: start: 20230226

REACTIONS (4)
  - Glossodynia [Not Recovered/Not Resolved]
  - Swollen tongue [Unknown]
  - Wrong technique in product usage process [Unknown]
  - Off label use [Unknown]

NARRATIVE: CASE EVENT DATE: 20230226
